FAERS Safety Report 9685543 (Version 1)
Quarter: 2013Q4

REPORT INFORMATION
  Report Type: Spontaneous
  Country: BR (occurrence: BR)
  Receive Date: 20131113
  Receipt Date: 20131113
  Transmission Date: 20140711
  Serious: Yes (Hospitalization)
  Sender: FDA-Public Use
  Company Number: BR-SA-2013SA114205

PATIENT
  Age: 76 Year
  Sex: Female
  Weight: 110 kg

DRUGS (15)
  1. LANTUS [Suspect]
     Indication: TYPE 2 DIABETES MELLITUS
     Route: 058
     Dates: start: 201206
  2. APIDRA [Suspect]
     Indication: TYPE 2 DIABETES MELLITUS
     Route: 058
     Dates: start: 201206
  3. GABAPENTIN [Concomitant]
     Indication: PAIN IN EXTREMITY
  4. STILNOX [Concomitant]
     Indication: SLEEP DISORDER
  5. FRONTAL [Concomitant]
     Indication: SLEEP DISORDER
  6. AAS [Concomitant]
     Indication: PROPHYLAXIS
  7. ATENSINA [Concomitant]
     Indication: HYPERTENSION
  8. HYDRALAZINE [Concomitant]
     Indication: HYPERTENSION
  9. MONOCORDIL [Concomitant]
     Indication: HYPERTENSION
  10. ADALAT [Concomitant]
     Indication: HYPERTENSION
  11. FUROSEMIDE [Concomitant]
     Indication: POLYURIA
  12. OMEPRAZOLE [Concomitant]
     Indication: PRODUCT USED FOR UNKNOWN INDICATION
  13. NARCARICIN [Concomitant]
     Indication: RENAL DISORDER
     Dates: start: 2011
  14. ERYTHROPOIETIN [Concomitant]
     Indication: RENAL DISORDER
     Dosage: 3 VIALS
     Dates: start: 2009
  15. ERYTHROPOIETIN [Concomitant]
     Indication: ANAEMIA
     Dosage: 3 VIALS
     Dates: start: 2009

REACTIONS (4)
  - Cardiac disorder [Not Recovered/Not Resolved]
  - Dizziness [Not Recovered/Not Resolved]
  - Fatigue [Not Recovered/Not Resolved]
  - Dyspnoea [Not Recovered/Not Resolved]
